FAERS Safety Report 6162788-1 (Version None)
Quarter: 2009Q2

REPORT INFORMATION
  Report Type: 
  Country: None (occurrence: None)
  Receive Date: 20090421
  Receipt Date: 20080714
  Transmission Date: 20091009
  Serious: No
  Sender: FDA-Public Use
  Company Number: US-ASTRAZENECA-2008UW14051

PATIENT
  Age: 48 Year
  Sex: Female

DRUGS (2)
  1. TOPROL-XL [Suspect]
     Indication: HYPERTENSION
     Route: 048
     Dates: start: 20060101, end: 20080101
  2. TRIAMTERENE [Concomitant]
     Indication: FLUID RETENTION

REACTIONS (4)
  - DIZZINESS [None]
  - HEADACHE [None]
  - MALAISE [None]
  - PRODUCT QUALITY ISSUE [None]
